FAERS Safety Report 5081919-8 (Version None)
Quarter: 2006Q3

REPORT INFORMATION
  Report Type: 
  Country: None (occurrence: None)
  Receive Date: 20060811
  Receipt Date: 20060727
  Transmission Date: 20061208
  Serious: Yes (Hospitalization)
  Sender: FDA-Public Use
  Company Number: DSA_28534_2006

PATIENT
  Sex: Female

DRUGS (3)
  1. TAVOR [Suspect]
     Dosage: 2 MG ONCE PO
     Route: 048
     Dates: start: 20060726, end: 20060726
  2. SEROQUEL [Suspect]
     Dosage: 1800 MG ONCE PO
     Route: 048
     Dates: start: 20060726, end: 20060726
  3. TRUXAL [Suspect]
     Dosage: 600 MG ONCE PO
     Route: 048
     Dates: start: 20060726, end: 20060726

REACTIONS (4)
  - MULTIPLE DRUG OVERDOSE INTENTIONAL [None]
  - SOMNOLENCE [None]
  - SUICIDE ATTEMPT [None]
  - TACHYCARDIA [None]
